FAERS Safety Report 6318512-2 (Version None)
Quarter: 2009Q3

REPORT INFORMATION
  Report Type: 
  Country: None (occurrence: None)
  Receive Date: 20090821
  Receipt Date: 20090810
  Transmission Date: 20100115
  Serious: Yes (Other)
  Sender: FDA-Public Use
  Company Number: US-PFIZER INC-2009236959

PATIENT
  Sex: Female
  Weight: 67.574 kg

DRUGS (2)
  1. CHANTIX [Suspect]
     Indication: SMOKING CESSATION THERAPY
     Dosage: 1 MG, 2X/DAY
     Route: 048
     Dates: start: 20081101, end: 20081126
  2. MORPHINE HCL ELIXIR [Suspect]
     Indication: ABDOMINAL RIGIDITY
     Dosage: FREQUENCY: ONE TIME
     Dates: start: 20081126, end: 20081126

REACTIONS (4)
  - ABDOMINAL RIGIDITY [None]
  - DYSPEPSIA [None]
  - HYPERSENSITIVITY [None]
  - URTICARIA [None]
